FAERS Safety Report 7555640-8 (Version None)
Quarter: 2011Q2

REPORT INFORMATION
  Report Type: 
  Country: None (occurrence: None)
  Receive Date: 20110617
  Receipt Date: 20110128
  Transmission Date: 20111010
  Serious: Yes (Hospitalization, Other)
  Sender: FDA-Public Use
  Company Number: PHHY2010NL87297

PATIENT
  Age: 41 Year
  Sex: Male

DRUGS (14)
  1. CLOZAPINE [Suspect]
     Dosage: 500 MG/DAY
  2. DIAZEPAM [Concomitant]
     Dosage: 1 DF, UNK
  3. PIPAMPERONE [Concomitant]
     Dosage: 1 DF, UNK
  4. ANTACIDS [Concomitant]
  5. CLOZAPINE [Suspect]
     Indication: SCHIZOPHRENIA
     Dosage: 500 MG/DAY
  6. CANNABIS [Concomitant]
     Dosage: 1 DF, UNK
  7. IRON SUPPLEMENTS [Concomitant]
  8. CLOZAPINE [Suspect]
     Dosage: 600 MG/DAY
  9. RISPERIDONE [Concomitant]
     Dosage: 6 MG, UNK
  10. ANTIBIOTICS [Concomitant]
  11. LORAZEPAM [Concomitant]
     Dosage: 160 MG, 10 MG, 4 MG
  12. METHADONE HCL [Concomitant]
     Dosage: 1 DF, UNK
  13. COCAINE HYDROCHLORIDE [Concomitant]
     Dosage: 1 DF, UNK
  14. HALOPERIDOL [Concomitant]
     Dosage: 1 DF, UNK

REACTIONS (15)
  - LIVER DISORDER [None]
  - PLEURAL EFFUSION [None]
  - HELICOBACTER INFECTION [None]
  - PNEUMONIA BACTERIAL [None]
  - C-REACTIVE PROTEIN INCREASED [None]
  - THROMBOCYTOSIS [None]
  - AGGRESSION [None]
  - GASTRITIS [None]
  - HAEMOGLOBIN DECREASED [None]
  - ANTIPSYCHOTIC DRUG LEVEL INCREASED [None]
  - ABDOMINAL DISCOMFORT [None]
  - PYREXIA [None]
  - SEDATION [None]
  - NORMOCHROMIC NORMOCYTIC ANAEMIA [None]
  - IRON DEFICIENCY ANAEMIA [None]
